FAERS Safety Report 18775110 (Version 1)
Quarter: 2021Q1

REPORT INFORMATION
  Report Type: Spontaneous
  Country: US (occurrence: US)
  Receive Date: 20210122
  Receipt Date: 20210122
  Transmission Date: 20210419
  Serious: No
  Sender: FDA-Public Use
  Company Number: US-DERMIRA, INC.-US-2020DER000219

PATIENT
  Age: 25 Year
  Sex: Male

DRUGS (1)
  1. QBREXZA [Suspect]
     Active Substance: GLYCOPYRRONIUM TOSYLATE
     Indication: PRODUCT USED FOR UNKNOWN INDICATION
     Dosage: UNK, QD
     Route: 061
     Dates: start: 202009, end: 202009

REACTIONS (5)
  - Off label use [Unknown]
  - Vision blurred [Unknown]
  - Dizziness [Unknown]
  - Abnormal faeces [Unknown]
  - Dry mouth [Unknown]

NARRATIVE: CASE EVENT DATE: 202009
